FAERS Safety Report 19840825 (Version 8)
Quarter: 2022Q3

REPORT INFORMATION
  Report Type: Spontaneous
  Country: CA (occurrence: CA)
  Receive Date: 20210915
  Receipt Date: 20220928
  Transmission Date: 20221026
  Serious: Yes (Other)
  Sender: FDA-Public Use
  Company Number: CA-CELLTRION INC.-2020CA030049

PATIENT

DRUGS (17)
  1. INFLECTRA [Suspect]
     Active Substance: INFLIXIMAB-DYYB
     Indication: Crohn^s disease
     Dosage: 400 MG 0, 2, 6 WEEKS, THEN EVERY 8 WEEKS (INFLECTRA 100MG/VIAL)
     Route: 042
     Dates: start: 20201102
  2. INFLECTRA [Suspect]
     Active Substance: INFLIXIMAB-DYYB
     Dosage: 400 MG 0, 2, 6 WEEKS, THEN EVERY 8 WEEKS
     Route: 042
     Dates: start: 20201215
  3. INFLECTRA [Suspect]
     Active Substance: INFLIXIMAB-DYYB
     Dosage: 400 MG 0, 2, 6 WEEKS, THEN EVERY 8 WEEKS
     Route: 042
     Dates: start: 20210209
  4. INFLECTRA [Suspect]
     Active Substance: INFLIXIMAB-DYYB
     Dosage: 800MG, DOSE TO BE RECEIVED ASAP THEN EVERY 8 WEEKS
     Route: 042
     Dates: start: 20210303, end: 20210303
  5. INFLECTRA [Suspect]
     Active Substance: INFLIXIMAB-DYYB
     Dosage: 800MG, DOSE TO BE RECEIVED ASAP THEN EVERY 8 WEEKS
     Route: 042
     Dates: start: 20210426, end: 20210426
  6. INFLECTRA [Suspect]
     Active Substance: INFLIXIMAB-DYYB
     Dosage: 800MG, DOSE TO BE RECEIVED ASAP THEN EVERY 8 WEEKS
     Route: 042
     Dates: start: 20210621
  7. INFLECTRA [Suspect]
     Active Substance: INFLIXIMAB-DYYB
     Dosage: 800MG, DOSE TO BE RECEIVED ASAP THEN EVERY 8 WEEKS
     Route: 042
     Dates: start: 20210816
  8. INFLECTRA [Suspect]
     Active Substance: INFLIXIMAB-DYYB
     Dosage: 800MG, DOSE TO BE RECEIVED ASAP THEN EVERY 8 WEEKS
     Route: 042
     Dates: start: 20211012
  9. INFLECTRA [Suspect]
     Active Substance: INFLIXIMAB-DYYB
     Dosage: 800MG, DOSE TO BE RECEIVED ASAP THEN EVERY 8 WEEKS
     Route: 042
     Dates: start: 20211207
  10. INFLECTRA [Suspect]
     Active Substance: INFLIXIMAB-DYYB
     Dosage: 800MG, DOSE TO BE RECEIVED ASAP THEN EVERY 8 WEEKS
     Route: 042
     Dates: start: 20211207
  11. INFLECTRA [Suspect]
     Active Substance: INFLIXIMAB-DYYB
     Dosage: 800MG, DOSE TO BE RECEIVED ASAP THEN EVERY 8 WEEKS
     Route: 042
     Dates: start: 20220131
  12. INFLECTRA [Suspect]
     Active Substance: INFLIXIMAB-DYYB
     Dosage: 800MG, DOSE TO BE RECEIVED ASAP THEN EVERY 8 WEEKS
     Route: 042
     Dates: start: 20220201
  13. INFLECTRA [Suspect]
     Active Substance: INFLIXIMAB-DYYB
     Dosage: 800MG, ONE ASAP THEN EVERY 8 WEEKS
     Route: 042
     Dates: start: 20220721
  14. INFLECTRA [Suspect]
     Active Substance: INFLIXIMAB-DYYB
     Dosage: 800MG, ONE ASAP THEN EVERY 8 WEEKS
     Route: 042
     Dates: start: 20220915
  15. ACETAMINOPHEN [Concomitant]
     Active Substance: ACETAMINOPHEN
     Indication: Premedication
     Dosage: 1 G
     Route: 048
     Dates: start: 20210426, end: 20210426
  16. CORTISONE [Concomitant]
     Active Substance: CORTISONE
     Dosage: UNK
  17. SYNTHROID [Concomitant]
     Active Substance: LEVOTHYROXINE SODIUM
     Dosage: UNK
     Dates: start: 202209

REACTIONS (16)
  - Clostridium difficile infection [Not Recovered/Not Resolved]
  - Condition aggravated [Not Recovered/Not Resolved]
  - Drug ineffective [Unknown]
  - Off label use [Unknown]
  - Intentional product use issue [Unknown]
  - Inappropriate schedule of product administration [Unknown]
  - COVID-19 [Unknown]
  - Fatigue [Not Recovered/Not Resolved]
  - Hypoaesthesia [Unknown]
  - Hypertension [Unknown]
  - Crying [Not Recovered/Not Resolved]
  - Back pain [Not Recovered/Not Resolved]
  - Arthralgia [Unknown]
  - Abdominal distension [Unknown]
  - Cervicitis [Recovered/Resolved]
  - Dizziness [Not Recovered/Not Resolved]

NARRATIVE: CASE EVENT DATE: 20200101
